FAERS Safety Report 7867614-8 (Version None)
Quarter: 2011Q4

REPORT INFORMATION
  Report Type: 
  Country: None (occurrence: None)
  Receive Date: 20111028
  Receipt Date: 20111025
  Transmission Date: 20120403
  Serious: Yes (Death)
  Sender: FDA-Public Use
  Company Number: PHEH2011US07855

PATIENT
  Sex: Male

DRUGS (1)
  1. GLEEVEC [Suspect]
     Dosage: 400 MG, DAILY
     Route: 048
     Dates: end: 20110501

REACTIONS (2)
  - DRUG INEFFECTIVE [None]
  - DEATH [None]
